APPROVED DRUG PRODUCT: CHLORPROMAZINE HYDROCHLORIDE INTENSOL
Active Ingredient: CHLORPROMAZINE HYDROCHLORIDE
Strength: 100MG/ML
Dosage Form/Route: CONCENTRATE;ORAL
Application: A088158 | Product #001
Applicant: HIKMA PHARMACEUTICALS USA INC
Approved: Apr 27, 1983 | RLD: No | RS: No | Type: DISCN